FAERS Safety Report 13012029 (Version 1)
Quarter: 2016Q4

REPORT INFORMATION
  Report Type: Spontaneous
  Country: FR (occurrence: FR)
  Receive Date: 20161209
  Receipt Date: 20161209
  Transmission Date: 20170207
  Serious: Yes (Other)
  Sender: FDA-Public Use
  Company Number: FR-ORION CORPORATION ORION PHARMA-TREX2016-2546

PATIENT
  Age: 59 Year
  Sex: Male

DRUGS (5)
  1. IMETH [Interacting]
     Active Substance: METHOTREXATE SODIUM
     Route: 048
     Dates: start: 2016, end: 201603
  2. IMETH [Suspect]
     Active Substance: METHOTREXATE SODIUM
     Indication: SPONDYLITIS
     Route: 048
     Dates: start: 20160105, end: 2016
  3. CHRONO-INDOCID [Interacting]
     Active Substance: INDOMETHACIN
     Indication: SPONDYLITIS
     Dosage: 25 MG IN MORNING, 75 MG IN EVENING
     Route: 048
     Dates: start: 20160220
  4. CHRONO-INDOCID [Interacting]
     Active Substance: INDOMETHACIN
     Route: 048
  5. MOPRAL [Concomitant]
     Active Substance: OMEPRAZOLE SODIUM
     Dosage: STRENGTH: 20 MG
     Route: 065

REACTIONS (3)
  - Haematuria [Recovered/Resolved]
  - Product use issue [Unknown]
  - Drug interaction [Unknown]

NARRATIVE: CASE EVENT DATE: 201603
